FAERS Safety Report 25715726 (Version 1)
Quarter: 2025Q3

REPORT INFORMATION
  Report Type: Spontaneous
  Country: US (occurrence: US)
  Receive Date: 20250822
  Receipt Date: 20250822
  Transmission Date: 20251020
  Serious: Yes (Hospitalization)
  Sender: UCB
  Company Number: US-UCBSA-2025049398

PATIENT
  Sex: Female

DRUGS (1)
  1. KEPPRA [Suspect]
     Active Substance: LEVETIRACETAM
     Indication: Seizure
     Route: 048
     Dates: start: 20100102

REACTIONS (4)
  - Seizure [Not Recovered/Not Resolved]
  - Hypersensitivity [Unknown]
  - Anxiety [Unknown]
  - Confusional state [Unknown]
